FAERS Safety Report 9760988 (Version 2)
Quarter: 2014Q1

REPORT INFORMATION
  Report Type: Spontaneous
  Country: GB (occurrence: GB)
  Receive Date: 20131216
  Receipt Date: 20140310
  Transmission Date: 20141002
  Serious: Yes (Other)
  Sender: FDA-Public Use
  Company Number: PHFR2013GB006962

PATIENT
  Age: 21 Year
  Sex: Female

DRUGS (5)
  1. TEGRETOL [Suspect]
     Dosage: 800 UKN, DAILY
  2. TOPIRAMATE [Suspect]
     Dosage: 100 UNK, DAILY
  3. KEPPRA [Suspect]
     Dosage: 2500 UKN, DAILY
  4. KEPPRA [Suspect]
     Dosage: 3000 UKN, DAILY
  5. CLOBAZAM [Suspect]
     Dosage: 10 UKN, DAILY

REACTIONS (3)
  - Convulsion [Unknown]
  - Drug intolerance [Recovered/Resolved]
  - Maternal exposure during pregnancy [Recovered/Resolved]
